FAERS Safety Report 4800757-1 (Version None)
Quarter: 2005Q3

REPORT INFORMATION
  Report Type: 
  Country: None (occurrence: None)
  Receive Date: 20050929
  Receipt Date: 20050722
  Transmission Date: 20060218
  Serious: No
  Sender: FDA-Public Use
  Company Number: 05P-163-0306350

PATIENT
  Age: 72 Year
  Sex: Female
  Weight: 52.6173 kg

DRUGS (2)
  1. HUMIRA [Suspect]
     Indication: RHEUMATOID ARTHRITIS
     Dosage: 40 MG, 1 IN 2 WK, SUBCUTANEOUS
     Route: 058
     Dates: start: 20030301
  2. METHOTREXATE [Concomitant]

REACTIONS (4)
  - HEADACHE [None]
  - LABYRINTHITIS [None]
  - NAUSEA [None]
  - PAIN [None]
